FAERS Safety Report 6413907-0 (Version None)
Quarter: 2009Q4

REPORT INFORMATION
  Report Type: 
  Country: None (occurrence: None)
  Receive Date: 20091026
  Receipt Date: 20091020
  Transmission Date: 20100525
  Serious: Yes (Hospitalization)
  Sender: FDA-Public Use
  Company Number: B0599135A

PATIENT
  Sex: Female

DRUGS (4)
  1. TYKERB [Suspect]
     Indication: BREAST CANCER
     Dosage: 1250MG PER DAY
     Route: 048
     Dates: start: 20010819
  2. XELODA [Concomitant]
     Route: 048
  3. FUROSEMIDE [Concomitant]
     Route: 065
  4. MICARDIS [Concomitant]
     Route: 048

REACTIONS (1)
  - SUDDEN HEARING LOSS [None]
